FAERS Safety Report 25665435 (Version 1)
Quarter: 2025Q3

REPORT INFORMATION
  Report Type: Spontaneous
  Country: US (occurrence: None)
  Receive Date: 20250810
  Receipt Date: 20250810
  Transmission Date: 20251021
  Serious: Yes (Life-Threatening, Hospitalization)
  Sender: FDA-CTU
  Company Number: None

PATIENT
  Age: 53 Year
  Sex: Female
  Weight: 84.15 kg

DRUGS (6)
  1. KENALOG [Suspect]
     Active Substance: TRIAMCINOLONE ACETONIDE
     Indication: Plantar fasciitis
     Route: 030
     Dates: start: 20250607, end: 20250607
  2. REFRESH CLASSIC [Suspect]
     Active Substance: POLYVINYL ALCOHOL\POVIDONE
  3. Nordic Naturals omega soft gel [Concomitant]
  4. Airbourne multi vitamins [Concomitant]
  5. vitamins D [Concomitant]
  6. ZINC [Concomitant]
     Active Substance: ZINC

REACTIONS (4)
  - Injection related reaction [None]
  - Anaphylactic shock [None]
  - Loss of consciousness [None]
  - Allergic reaction to excipient [None]

NARRATIVE: CASE EVENT DATE: 20250607
